FAERS Safety Report 14407436 (Version 1)
Quarter: 2018Q1

REPORT INFORMATION
  Report Type: Spontaneous
  Country: US (occurrence: US)
  Receive Date: 20180116
  Receipt Date: 20180116
  Transmission Date: 20180509
  Serious: Yes (Death)
  Sender: FDA-Public Use
  Company Number: None

PATIENT
  Sex: Female
  Weight: 54.9 kg

DRUGS (7)
  1. IBRANCE [Suspect]
     Active Substance: PALBOCICLIB
     Indication: BREAST CANCER FEMALE
     Route: 048
     Dates: start: 20170926
  2. TYLENOL [Concomitant]
     Active Substance: ACETAMINOPHEN
  3. LORAZEPAM. [Concomitant]
     Active Substance: LORAZEPAM
  4. ADVIL [Concomitant]
     Active Substance: IBUPROFEN
  5. METOPROLOL. [Concomitant]
     Active Substance: METOPROLOL
  6. TUMS [Concomitant]
     Active Substance: CALCIUM CARBONATE
  7. FASLODEX [Concomitant]
     Active Substance: FULVESTRANT

REACTIONS (1)
  - Death [None]
